FAERS Safety Report 8154352-X (Version None)
Quarter: 2012Q1

REPORT INFORMATION
  Report Type: 
  Country: None (occurrence: None)
  Receive Date: 20120221
  Receipt Date: 20120214
  Transmission Date: 20120608
  Serious: Yes (Hospitalization)
  Sender: FDA-Public Use
  Company Number: US-ROXANE LABORATORIES, INC.-2012-RO-00675RO

PATIENT
  Sex: Female

DRUGS (2)
  1. METHOTREXATE [Suspect]
  2. VALTREX [Suspect]
     Dates: start: 20120127

REACTIONS (4)
  - ORAL PAIN [None]
  - HYPERSENSITIVITY [None]
  - DYSPNOEA [None]
  - MOUTH ULCERATION [None]
